FAERS Safety Report 5759802-1 (Version None)
Quarter: 2008Q2

REPORT INFORMATION
  Report Type: 
  Country: None (occurrence: None)
  Receive Date: 20080605
  Receipt Date: 20080528
  Transmission Date: 20081010
  Serious: Yes (Other)
  Sender: FDA-Public Use
  Company Number: US-ABBOTT-08P-163-0454544-00

PATIENT
  Age: 37 Year
  Sex: Female

DRUGS (3)
  1. RITONAVIR SOFT GELATIN CAPSULES [Suspect]
     Indication: ANTIRETROVIRAL THERAPY
     Route: 048
  2. ATAZANAVIR SULFATE [Concomitant]
     Indication: ANTIRETROVIRAL THERAPY
     Route: 048
  3. TRUVADA [Concomitant]
     Indication: ANTIRETROVIRAL THERAPY

REACTIONS (2)
  - CYTOGENETIC ABNORMALITY [None]
  - MATERNAL DRUGS AFFECTING FOETUS [None]
